FAERS Safety Report 4590422-0 (Version None)
Quarter: 2005Q1

REPORT INFORMATION
  Report Type: 
  Country: None (occurrence: None)
  Receive Date: 20050224
  Receipt Date: 20050215
  Transmission Date: 20050727
  Serious: Yes (Death)
  Sender: FDA-Public Use
  Company Number: US-JNJFOC-20050204139

PATIENT
  Sex: Female
  Weight: 95.26 kg

DRUGS (4)
  1. HALDOL [Suspect]
     Indication: SCHIZOPHRENIA, UNDIFFERENTIATED TYPE
     Dates: start: 20030303, end: 20041005
  2. CLOZAPINE [Suspect]
     Indication: SCHIZOPHRENIA, UNDIFFERENTIATED TYPE
     Route: 049
     Dates: start: 20031021, end: 20050105
  3. ATIVAN [Concomitant]
     Indication: ANXIETY
  4. LITHIUM CARBONATE [Concomitant]

REACTIONS (1)
  - DEATH [None]
